FAERS Safety Report 13890834 (Version 3)
Quarter: 2017Q3

REPORT INFORMATION
  Report Type: Spontaneous
  Country: FR (occurrence: FR)
  Receive Date: 20170822
  Receipt Date: 20170904
  Transmission Date: 20171127
  Serious: Yes (Other)
  Sender: FDA-Public Use
  Company Number: FR-CONCORDIA PHARMACEUTICALS INC.-GSH201708-004772

PATIENT
  Age: 22 Year
  Sex: Female

DRUGS (9)
  1. PREDNISONE. [Suspect]
     Active Substance: PREDNISONE
     Indication: CHRONIC CUTANEOUS LUPUS ERYTHEMATOSUS
     Route: 065
  2. TACROLIMUS. [Suspect]
     Active Substance: TACROLIMUS
     Indication: CHRONIC CUTANEOUS LUPUS ERYTHEMATOSUS
     Route: 061
  3. BELIMUMAB [Suspect]
     Active Substance: BELIMUMAB
     Indication: CHRONIC CUTANEOUS LUPUS ERYTHEMATOSUS
  4. CHLOROQUINE. [Suspect]
     Active Substance: CHLOROQUINE
     Indication: CHRONIC CUTANEOUS LUPUS ERYTHEMATOSUS
     Route: 065
  5. ASPIRIN. [Suspect]
     Active Substance: ASPIRIN
     Indication: CHRONIC CUTANEOUS LUPUS ERYTHEMATOSUS
  6. HYDROXYCHLOROQUINE [Suspect]
     Active Substance: HYDROXYCHLOROQUINE
     Indication: CHRONIC CUTANEOUS LUPUS ERYTHEMATOSUS
     Route: 065
  7. MYCOPHENOLATE MOFETIL. [Suspect]
     Active Substance: MYCOPHENOLATE MOFETIL
     Indication: CHRONIC CUTANEOUS LUPUS ERYTHEMATOSUS
     Route: 065
  8. METHOTREXATE. [Suspect]
     Active Substance: METHOTREXATE
     Indication: CHRONIC CUTANEOUS LUPUS ERYTHEMATOSUS
     Route: 065
  9. ILOMEDIN [Suspect]
     Active Substance: ILOPROST TROMETHAMINE
     Indication: CHRONIC CUTANEOUS LUPUS ERYTHEMATOSUS

REACTIONS (5)
  - Condition aggravated [Unknown]
  - Chronic cutaneous lupus erythematosus [Unknown]
  - Off label use [Unknown]
  - Herpes zoster [Unknown]
  - Drug ineffective [Unknown]
